FAERS Safety Report 6309014-8 (Version None)
Quarter: 2009Q3

REPORT INFORMATION
  Report Type: 
  Country: None (occurrence: None)
  Receive Date: 20090813
  Receipt Date: 20090803
  Transmission Date: 20100115
  Serious: Yes (Death)
  Sender: FDA-Public Use
  Company Number: JP-ALLERGAN-0911008US

PATIENT
  Sex: Male

DRUGS (5)
  1. BOTOX [Suspect]
     Indication: TORTICOLLIS
     Dosage: 100 UNITS, SINGLE
     Route: 030
     Dates: start: 20060615, end: 20060615
  2. BOTOX [Suspect]
     Dosage: 100 UNITS, SINGLE
     Route: 030
     Dates: start: 20060914, end: 20060914
  3. NEUROTROPIN [Concomitant]
     Indication: ANALGESIA
     Dosage: 6 DF, QD
     Route: 048
     Dates: start: 20010216
  4. TOFRANIL [Concomitant]
     Indication: ANALGESIA
     Dosage: 10 MG, QD
     Route: 048
     Dates: start: 20010216
  5. TAMBOCOR [Concomitant]
     Indication: ANALGESIA
     Dosage: 150 MG, QD
     Route: 048
     Dates: start: 20010518

REACTIONS (1)
  - NEOPLASM PROGRESSION [None]
